FAERS Safety Report 10088038 (Version 2)
Quarter: 2014Q2

REPORT INFORMATION
  Report Type: Spontaneous
  Country: US (occurrence: US)
  Receive Date: 20140420
  Receipt Date: 20140420
  Transmission Date: 20141212
  Serious: No
  Sender: FDA-Public Use
  Company Number: US-009507513-1402USA011485

PATIENT
  Age: 34 Year
  Sex: Male
  Weight: 100.9 kg

DRUGS (6)
  1. PEGINTRON [Suspect]
     Indication: HEPATITIS C
     Dosage: UNK, 1 STANDARD DOSE OF 1
     Route: 058
     Dates: start: 20140216
  2. REBETOL [Suspect]
     Dosage: 600 MG, BID
     Route: 048
     Dates: start: 20140216
  3. SOVALDI [Concomitant]
     Dosage: 400 MG, QD
     Route: 048
  4. DICYCLOMINE HYDROCHLORIDE [Concomitant]
     Dosage: 40MG DAILY
     Route: 048
  5. NEXIUM [Concomitant]
     Dosage: UNK, QD
     Route: 048
  6. TRAMADOL HYDROCHLORIDE [Concomitant]
     Dosage: 100MG DAILY
     Route: 048

REACTIONS (6)
  - Diarrhoea [Unknown]
  - Chills [Unknown]
  - Drug administration error [Unknown]
  - Product quality issue [Unknown]
  - Vomiting [Unknown]
  - Nausea [Unknown]
